FAERS Safety Report 17417242 (Version 1)
Quarter: 2020Q1

REPORT INFORMATION
  Report Type: Spontaneous
  Country: US (occurrence: US)
  Receive Date: 20200214
  Receipt Date: 20200214
  Transmission Date: 20200409
  Serious: No
  Sender: FDA-Public Use
  Company Number: US-ASTRAZENECA-2020SE20208

PATIENT
  Sex: Male

DRUGS (4)
  1. SYNAGIS [Suspect]
     Active Substance: PALIVIZUMAB
     Indication: PROLONGED PREGNANCY
     Route: 030
     Dates: start: 20200109
  2. SYNAGIS [Suspect]
     Active Substance: PALIVIZUMAB
     Indication: PROLONGED PREGNANCY
     Route: 030
     Dates: start: 20200109
  3. SYNAGIS [Suspect]
     Active Substance: PALIVIZUMAB
     Indication: PROLONGED PREGNANCY
     Route: 030
     Dates: start: 20200109
  4. SYNAGIS [Suspect]
     Active Substance: PALIVIZUMAB
     Indication: PROLONGED PREGNANCY
     Route: 030
     Dates: start: 20200109

REACTIONS (1)
  - Dyspnoea [Unknown]
